FAERS Safety Report 24268790 (Version 1)
Quarter: 2024Q3

REPORT INFORMATION
  Report Type: Spontaneous
  Country: US (occurrence: None)
  Receive Date: 20240829
  Receipt Date: 20240829
  Transmission Date: 20241017
  Serious: Yes (Hospitalization)
  Sender: Public
  Company Number: None

PATIENT
  Age: 51 Year
  Sex: Male
  Weight: 112.1 kg

DRUGS (2)
  1. XELJANZ [Suspect]
     Active Substance: TOFACITINIB CITRATE
     Indication: Colitis ulcerative
     Dosage: FREQUENCY : TWICE A DAY;?
     Route: 048
     Dates: start: 20240522, end: 20240720
  2. HUMIRA [Concomitant]
     Active Substance: ADALIMUMAB

REACTIONS (8)
  - Rash [None]
  - Rash [None]
  - Pyrexia [None]
  - Cough [None]
  - Pneumonia [None]
  - Eczema [None]
  - Dermatitis allergic [None]
  - Eczema [None]

NARRATIVE: CASE EVENT DATE: 20240720
